FAERS Safety Report 18693898 (Version 1)
Quarter: 2021Q1

REPORT INFORMATION
  Report Type: Other
  Country: US (occurrence: US)
  Receive Date: 20210104
  Receipt Date: 20210104
  Transmission Date: 20210419
  Serious: Yes (Hospitalization)
  Sender: FDA-Public Use
  Company Number: US-ROCHE-2741821

PATIENT
  Sex: Female

DRUGS (2)
  1. XELODA [Suspect]
     Active Substance: CAPECITABINE
     Indication: COLON CANCER
     Dosage: TAKE 1 TABLET BY MOUTH TWICE A DAY 2 WEEK(S) ON,  2 WEEK(S) OFF
     Route: 048
  2. XELODA [Suspect]
     Active Substance: CAPECITABINE
     Dosage: TAKE 5 TABLET(S) BY MOUTH TWICE A DAY 2 WEEK(S) ON, 2 WEEK(S) OFF
     Route: 048

REACTIONS (4)
  - Pneumonia [Unknown]
  - Panic attack [Unknown]
  - Diarrhoea [Unknown]
  - Stress [Unknown]
